FAERS Safety Report 5348420-5 (Version None)
Quarter: 2007Q2

REPORT INFORMATION
  Report Type: 
  Country: None (occurrence: None)
  Receive Date: 20070605
  Receipt Date: 20070524
  Transmission Date: 20071010
  Serious: Yes (Hospitalization)
  Sender: FDA-Public Use
  Company Number: GXKR2007NL04626

PATIENT
  Age: 80 Year
  Sex: Female

DRUGS (2)
  1. METFORMIN HYDROCHLORIDE [Suspect]
     Indication: DIABETES MELLITUS
     Dosage: 1000 MG, BID, ORAL
     Route: 048
     Dates: start: 19990101
  2. ACTOS [Suspect]
     Indication: DIABETES MELLITUS
     Dosage: 30 MG, QD, ORAL
     Route: 048
     Dates: start: 20060801, end: 20070516

REACTIONS (1)
  - ANAEMIA [None]
